FAERS Safety Report 14594547 (Version 4)
Quarter: 2018Q2

REPORT INFORMATION
  Report Type: Spontaneous
  Country: US (occurrence: US)
  Receive Date: 20180302
  Receipt Date: 20180614
  Transmission Date: 20180711
  Serious: Yes (Life-Threatening, Hospitalization, Other)
  Sender: FDA-Public Use
  Company Number: US-ABBVIE-18P-163-2273046-00

PATIENT
  Age: 49 Year
  Sex: Female

DRUGS (37)
  1. VALPROIC ACID. [Interacting]
     Active Substance: VALPROIC ACID
     Route: 065
  2. CHLORPROMAZINE. [Suspect]
     Active Substance: CHLORPROMAZINE
     Indication: PRODUCT USED FOR UNKNOWN INDICATION
     Route: 065
  3. LORAZEPAM. [Suspect]
     Active Substance: LORAZEPAM
     Route: 065
  4. DIPHENHYDRAMINE. [Suspect]
     Active Substance: DIPHENHYDRAMINE
     Route: 065
  5. FLUPHENAZINE [Interacting]
     Active Substance: FLUPHENAZINE
     Indication: SCHIZOAFFECTIVE DISORDER BIPOLAR TYPE
     Route: 065
  6. VALPROIC ACID. [Suspect]
     Active Substance: VALPROIC ACID
     Indication: SCHIZOAFFECTIVE DISORDER BIPOLAR TYPE
     Route: 065
  7. CLOZAPINE. [Interacting]
     Active Substance: CLOZAPINE
     Route: 065
  8. RISPERIDONE. [Suspect]
     Active Substance: RISPERIDONE
     Route: 065
  9. CHLORPROMAZINE. [Suspect]
     Active Substance: CHLORPROMAZINE
     Route: 065
  10. RISPERDAL CONSTA [Interacting]
     Active Substance: RISPERIDONE
     Indication: SCHIZOAFFECTIVE DISORDER BIPOLAR TYPE
     Route: 030
  11. HALOPERIDOL. [Interacting]
     Active Substance: HALOPERIDOL
     Indication: SCHIZOAFFECTIVE DISORDER BIPOLAR TYPE
     Route: 042
  12. HALOPERIDOL. [Interacting]
     Active Substance: HALOPERIDOL
     Route: 042
  13. SERTRALINE [Concomitant]
     Active Substance: SERTRALINE HYDROCHLORIDE
     Indication: PRODUCT USED FOR UNKNOWN INDICATION
  14. VALPROIC ACID. [Interacting]
     Active Substance: VALPROIC ACID
     Route: 065
  15. CLOZAPINE. [Interacting]
     Active Substance: CLOZAPINE
     Indication: SCHIZOAFFECTIVE DISORDER BIPOLAR TYPE
     Route: 065
  16. CLOZAPINE. [Interacting]
     Active Substance: CLOZAPINE
     Route: 065
  17. CLOZAPINE. [Interacting]
     Active Substance: CLOZAPINE
     Route: 065
  18. CLOZAPINE. [Interacting]
     Active Substance: CLOZAPINE
     Route: 065
  19. LORAZEPAM. [Suspect]
     Active Substance: LORAZEPAM
     Indication: PRODUCT USED FOR UNKNOWN INDICATION
     Route: 042
  20. BENZTROPINE MESYLATE. [Concomitant]
     Active Substance: BENZTROPINE MESYLATE
     Indication: PRODUCT USED FOR UNKNOWN INDICATION
  21. VALPROIC ACID. [Interacting]
     Active Substance: VALPROIC ACID
     Route: 065
  22. CLOZAPINE. [Interacting]
     Active Substance: CLOZAPINE
     Route: 065
  23. LORAZEPAM. [Suspect]
     Active Substance: LORAZEPAM
     Route: 042
  24. HALOPERIDOL. [Interacting]
     Active Substance: HALOPERIDOL
     Route: 065
  25. HALOPERIDOL. [Interacting]
     Active Substance: HALOPERIDOL
     Route: 065
  26. CLOZAPINE. [Interacting]
     Active Substance: CLOZAPINE
     Route: 065
  27. CLOZAPINE. [Interacting]
     Active Substance: CLOZAPINE
     Route: 065
  28. RISPERIDONE. [Suspect]
     Active Substance: RISPERIDONE
     Route: 065
  29. FLUPHENAZINE [Interacting]
     Active Substance: FLUPHENAZINE
     Route: 065
  30. RISPERIDONE. [Suspect]
     Active Substance: RISPERIDONE
     Indication: SCHIZOAFFECTIVE DISORDER BIPOLAR TYPE
     Route: 065
  31. OLANZAPINE. [Interacting]
     Active Substance: OLANZAPINE
     Indication: SCHIZOAFFECTIVE DISORDER BIPOLAR TYPE
     Route: 030
  32. LORAZEPAM. [Suspect]
     Active Substance: LORAZEPAM
     Route: 042
  33. VALPROIC ACID. [Interacting]
     Active Substance: VALPROIC ACID
     Route: 065
  34. RISPERIDONE. [Suspect]
     Active Substance: RISPERIDONE
     Route: 065
  35. LORAZEPAM. [Suspect]
     Active Substance: LORAZEPAM
     Route: 042
  36. DIPHENHYDRAMINE. [Suspect]
     Active Substance: DIPHENHYDRAMINE
     Indication: PRODUCT USED FOR UNKNOWN INDICATION
     Route: 042
  37. HALOPERIDOL. [Interacting]
     Active Substance: HALOPERIDOL
     Route: 065

REACTIONS (23)
  - Hypotension [Unknown]
  - Pyrexia [Unknown]
  - Cough [Unknown]
  - Prescribed underdose [Unknown]
  - Tachypnoea [Unknown]
  - Agitation [Unknown]
  - Aggression [Unknown]
  - Psychotic disorder [Unknown]
  - Myocarditis [Unknown]
  - Pneumonia aspiration [Unknown]
  - Salivary hypersecretion [Unknown]
  - Electrocardiogram QT prolonged [Unknown]
  - Myocardial necrosis marker increased [Unknown]
  - Drug interaction [Unknown]
  - Metabolic disorder [Unknown]
  - Torsade de pointes [Unknown]
  - Cardiac arrest [Unknown]
  - Atrial fibrillation [Unknown]
  - Loss of consciousness [Unknown]
  - Arrhythmia [Unknown]
  - Sepsis [Unknown]
  - Sedation [Unknown]
  - Drug ineffective [Unknown]
